FAERS Safety Report 20760095 (Version 5)
Quarter: 2022Q4

REPORT INFORMATION
  Report Type: Spontaneous
  Country: US (occurrence: US)
  Receive Date: 20220428
  Receipt Date: 20221206
  Transmission Date: 20230112
  Serious: Yes (Other)
  Sender: FDA-Public Use
  Company Number: US-BRISTOL-MYERS SQUIBB COMPANY-2022-024169

PATIENT
  Age: 75 Year
  Sex: Female
  Weight: 71.67 kg

DRUGS (10)
  1. REVLIMID [Suspect]
     Active Substance: LENALIDOMIDE
     Indication: Plasma cell myeloma
     Dosage: DOSE 25 MG, FREQUENCY: 1 CAPSULES DAILY FOR 21 DAYS ON, 7 DAY OFF
     Route: 048
     Dates: start: 20220323
  2. REVLIMID [Suspect]
     Active Substance: LENALIDOMIDE
     Dosage: 21 DAYS ON, 7 DAYS OFF
     Route: 048
     Dates: start: 20220323
  3. REVLIMID [Suspect]
     Active Substance: LENALIDOMIDE
     Dosage: DAILY 21 DAYS
     Route: 048
     Dates: start: 20220317
  4. REVLIMID [Suspect]
     Active Substance: LENALIDOMIDE
     Dosage: 1 CAPSULE DAILY FOR 21 DAYS, 7 DAYS OF REST
     Route: 048
     Dates: start: 20220323
  5. DARZALEX FASPRO [Concomitant]
     Active Substance: DARATUMUMAB\HYALURONIDASE-FIHJ
     Indication: Product used for unknown indication
     Dosage: DOSE 120 MG/ML ?DARZALEX FASPRO 120MG
     Route: 065
  6. XGEVA [Concomitant]
     Active Substance: DENOSUMAB
     Indication: Product used for unknown indication
     Dosage: DOSE:  120MG/1.7ML VIA
     Route: 065
  7. SYNTHROID [Concomitant]
     Active Substance: LEVOTHYROXINE SODIUM
     Dosage: DOSE: ORAL TABLET 75 MCG
     Route: 065
  8. HYZAAR [Concomitant]
     Active Substance: HYDROCHLOROTHIAZIDE\LOSARTAN POTASSIUM
     Indication: Product used for unknown indication
     Dosage: DOSE: ORAL TABLET 100-12.5 MG
     Route: 065
  9. SIMVASTATIN [Concomitant]
     Active Substance: SIMVASTATIN
     Route: 048
  10. DEXAMETHASONE [Concomitant]
     Active Substance: DEXAMETHASONE
     Dosage: DAILY
     Route: 048

REACTIONS (10)
  - Neuropathy peripheral [Not Recovered/Not Resolved]
  - Osteopenia [Unknown]
  - Haemoglobin decreased [Not Recovered/Not Resolved]
  - Tremor [Not Recovered/Not Resolved]
  - Peripheral swelling [Not Recovered/Not Resolved]
  - Condition aggravated [Unknown]
  - Erythema [Not Recovered/Not Resolved]
  - Pigmentation disorder [Unknown]
  - Pain in extremity [Unknown]
  - Condition aggravated [Unknown]

NARRATIVE: CASE EVENT DATE: 20221101
